FAERS Safety Report 16668527 (Version 1)
Quarter: 2019Q3

REPORT INFORMATION
  Report Type: Spontaneous
  Country: US (occurrence: US)
  Receive Date: 20190620
  Receipt Date: 20190620
  Transmission Date: 20191004
  Serious: Yes (Other)
  Sender: FDA-Public Use
  Company Number: None

PATIENT
  Age: 66 Year
  Sex: Female
  Weight: 81.65 kg

DRUGS (1)
  1. JARDIANCE [Suspect]
     Active Substance: EMPAGLIFLOZIN
     Indication: DIABETES MELLITUS
     Route: 048
     Dates: start: 20180404, end: 20190505

REACTIONS (4)
  - Bone pain [None]
  - Pain in extremity [None]
  - Fungal infection [None]
  - Musculoskeletal pain [None]

NARRATIVE: CASE EVENT DATE: 20190404
